FAERS Safety Report 23949754 (Version 2)
Quarter: 2025Q2

REPORT INFORMATION
  Report Type: Spontaneous
  Country: US (occurrence: US)
  Receive Date: 20240607
  Receipt Date: 20250517
  Transmission Date: 20250717
  Serious: Yes (Other)
  Sender: AUROBINDO
  Company Number: US-MLMSERVICE-20240522-PI072442-00289-3

PATIENT
  Age: 75 Year
  Sex: Male

DRUGS (3)
  1. ROPINIROLE [Suspect]
     Active Substance: ROPINIROLE
     Indication: Restless legs syndrome
     Route: 065
  2. GABAPENTIN [Concomitant]
     Active Substance: GABAPENTIN
     Indication: Restless legs syndrome
     Route: 065
  3. FERRITIN [Concomitant]
     Active Substance: FERRITIN
     Indication: Mineral supplementation
     Route: 065

REACTIONS (1)
  - Restless leg augmentation syndrome [Recovering/Resolving]
